FAERS Safety Report 7118281-2 (Version None)
Quarter: 2010Q4

REPORT INFORMATION
  Report Type: 
  Country: None (occurrence: None)
  Receive Date: 20101123
  Receipt Date: 20101110
  Transmission Date: 20110411
  Serious: Yes (Hospitalization)
  Sender: FDA-Public Use
  Company Number: MX-ELI_LILLY_AND_COMPANY-MX201011003691

PATIENT
  Age: 80 Year
  Sex: Female
  Weight: 36.5 kg

DRUGS (8)
  1. FORTEO [Suspect]
     Indication: OSTEOPOROSIS
     Dosage: 20 UG, DAILY (1/D)
     Route: 058
  2. GLUCOVANCE [Concomitant]
     Indication: DIABETES MELLITUS
     Dosage: UNK, DAILY (1/D)
     Route: 065
  3. TRITACE [Concomitant]
     Dosage: UNK, DAILY (1/D)
     Route: 065
  4. CINITAPRIDE [Concomitant]
     Dosage: 1 MG, DAILY (1/D)
     Route: 065
  5. STRESSTABS [Concomitant]
     Dosage: 600 MG, DAILY (1/D)
     Route: 065
  6. SERMION [Concomitant]
     Dosage: 30 MG, DAILY (1/D)
     Route: 065
  7. LEXOTAN [Concomitant]
     Dosage: 6 MG, DAILY (1/D)
     Route: 065
  8. ASPIRIN [Concomitant]
     Dosage: UNK, DAILY (1/D)
     Route: 065

REACTIONS (2)
  - HYPONATRAEMIA [None]
  - WEIGHT DECREASED [None]
